FAERS Safety Report 23401434 (Version 1)
Quarter: 2024Q1

REPORT INFORMATION
  Report Type: Spontaneous
  Country: AU (occurrence: AU)
  Receive Date: 20240115
  Receipt Date: 20240115
  Transmission Date: 20240409
  Serious: Yes (Hospitalization, Other)
  Sender: FDA-Public Use
  Company Number: AU-AMGEN-AUSSP2024007253

PATIENT
  Age: 56 Year
  Sex: Male

DRUGS (13)
  1. APREMILAST [Suspect]
     Active Substance: APREMILAST
     Indication: Psoriatic arthropathy
     Dosage: UNK
     Route: 048
     Dates: start: 20220420, end: 20230320
  2. DEUCRAVACITINIB [Suspect]
     Active Substance: DEUCRAVACITINIB
     Indication: Psoriatic arthropathy
     Dosage: UNK
     Route: 048
     Dates: start: 20220420, end: 20230320
  3. LEFLUNOMIDE [Concomitant]
     Active Substance: LEFLUNOMIDE
     Indication: Psoriatic arthropathy
     Dosage: UNK
     Dates: start: 20201102, end: 20220810
  4. PREDNISONE [Concomitant]
     Active Substance: PREDNISONE
     Indication: Psoriatic arthropathy
     Dosage: UNK
     Dates: start: 20220617, end: 20220701
  5. METHOTREXATE [Concomitant]
     Active Substance: METHOTREXATE
     Indication: Psoriatic arthropathy
     Dosage: 20 MILLIGRAM, 25 MILLIGRAM FROM 24-JAN-2023
     Dates: start: 20181126
  6. ROSUVASTATIN [Concomitant]
     Active Substance: ROSUVASTATIN
  7. GLICLAZIDE [Concomitant]
     Active Substance: GLICLAZIDE
  8. IRBESARTAN [Concomitant]
     Active Substance: IRBESARTAN
  9. DAPAGLIFLOZIN [Concomitant]
     Active Substance: DAPAGLIFLOZIN
  10. METFORMIN [Concomitant]
     Active Substance: METFORMIN HYDROCHLORIDE
  11. SITAGLIPTIN [Concomitant]
     Active Substance: SITAGLIPTIN
  12. FOLIC ACID [Concomitant]
     Active Substance: FOLIC ACID
  13. JANUVIA [Concomitant]
     Active Substance: SITAGLIPTIN PHOSPHATE
     Dosage: 100 MILLIGRAM, QD
     Route: 048
     Dates: start: 20221207

REACTIONS (3)
  - Pneumonia [Recovered/Resolved]
  - COVID-19 [Unknown]
  - Blood glucose abnormal [Unknown]

NARRATIVE: CASE EVENT DATE: 20220520
